FAERS Safety Report 9424520 (Version 1)
Quarter: 2013Q3

REPORT INFORMATION
  Report Type: Spontaneous
  Country: BR (occurrence: BR)
  Receive Date: 20130729
  Receipt Date: 20130729
  Transmission Date: 20140515
  Serious: Yes (Hospitalization)
  Sender: FDA-Public Use
  Company Number: BR-JNJFOC-20130713466

PATIENT
  Age: 40 Year
  Sex: Female

DRUGS (4)
  1. XARELTO [Suspect]
     Indication: PULMONARY EMBOLISM
     Route: 048
     Dates: start: 20130614
  2. CILOSTAZOL [Concomitant]
     Route: 065
     Dates: start: 20130614
  3. TRAMADOL [Concomitant]
     Indication: ANALGESIC THERAPY
     Route: 065
     Dates: start: 20130614
  4. CODEINE [Concomitant]
     Indication: ANALGESIC THERAPY
     Route: 065
     Dates: start: 20130614

REACTIONS (4)
  - Embolism [Unknown]
  - Infection [Unknown]
  - Haematuria [Recovered/Resolved]
  - Off label use [Unknown]
